FAERS Safety Report 4483979-1 (Version None)
Quarter: 2004Q4

REPORT INFORMATION
  Report Type: 
  Country: None (occurrence: None)
  Receive Date: 20041025
  Receipt Date: 20041014
  Transmission Date: 20050328
  Serious: Yes (Hospitalization)
  Sender: FDA-Public Use
  Company Number: NO-ROCHE-383191

PATIENT
  Sex: Male
  Weight: 74 kg

DRUGS (1)
  1. VALGANCICLOVIR [Suspect]
     Route: 048
     Dates: start: 20040819, end: 20041006

REACTIONS (1)
  - PNEUMONIA [None]
